FAERS Safety Report 5402563-6 (Version None)
Quarter: 2007Q3

REPORT INFORMATION
  Report Type: 
  Country: None (occurrence: None)
  Receive Date: 20070801
  Receipt Date: 20070307
  Transmission Date: 20080115
  Serious: No
  Sender: FDA-Public Use
  Company Number: A0631606A

PATIENT
  Age: 58 Year
  Sex: Female
  Weight: 105 kg

DRUGS (6)
  1. IMITREX [Suspect]
     Indication: MIGRAINE
     Dosage: 50MG AS REQUIRED
     Route: 048
  2. MAXZIDE [Suspect]
     Dates: end: 20061215
  3. NAPROXEN [Suspect]
     Dates: end: 20061215
  4. LIPITOR [Concomitant]
  5. PROGESTERONE CREAM [Concomitant]
  6. ESTROGENIC SUBSTANCE [Concomitant]

REACTIONS (3)
  - BLOOD CREATININE INCREASED [None]
  - BLOOD UREA INCREASED [None]
  - RENAL FUNCTION TEST ABNORMAL [None]
